FAERS Safety Report 8811514 (Version 2)
Quarter: 2012Q4

REPORT INFORMATION
  Report Type: 
  Country: NL (occurrence: NL)
  Receive Date: 20120927
  Receipt Date: 20121211
  Transmission Date: 20130627
  Serious: Yes (Hospitalization, Other)
  Sender: FDA-Public Use
  Company Number: NL-PFIZER INC-2012234764

PATIENT
  Age: 36 Year
  Sex: Female
  Weight: 64 kg

DRUGS (13)
  1. GENOTROPIN [Suspect]
     Dosage: 0.8 mg, 1x/day, 7 injections/week
     Route: 058
     Dates: start: 1994
  2. HYDROCORTISONE [Concomitant]
     Indication: ACTH DECREASED
     Dosage: 3 times a day (10-10-5mg)
     Dates: start: 19900401
  3. LEVOTHYROXINE [Concomitant]
     Indication: TSH DECREASED
     Dosage: 100 ug, 1x/day
     Dates: start: 19900601
  4. LEVOTHYROXINE [Concomitant]
     Indication: PRIMARY HYPOTHYROIDISM
  5. MINRIN [Concomitant]
     Indication: ADH DECREASED
     Dosage: 0.1 mg, 2x/day
     Dates: start: 19900401
  6. ZANTAC [Concomitant]
     Indication: PEPTIC ULCER, SITE UNSPECIFIED
     Dosage: UNK
     Dates: start: 19960311
  7. PANTOZOL [Concomitant]
     Indication: DIAPHRAGMATIC HERNIA
     Dosage: 20 mg, 1x/day
     Dates: start: 19980617
  8. DERMESTRIL [Concomitant]
     Indication: LH BLOOD DECREASED
     Dosage: UNK
     Dates: start: 20041109
  9. DERMESTRIL [Concomitant]
     Indication: FSH DECREASED
  10. DERMESTRIL [Concomitant]
     Indication: HYPOGONADISM FEMALE
  11. DUPHASTON [Concomitant]
     Indication: LH BLOOD DECREASED
     Dosage: UNK
     Dates: start: 20041109
  12. DUPHASTON [Concomitant]
     Indication: FSH DECREASED
  13. DUPHASTON [Concomitant]
     Indication: HYPOGONADISM FEMALE

REACTIONS (1)
  - Adrenocortical insufficiency acute [Recovered/Resolved]
